FAERS Safety Report 5784399-X (Version None)
Quarter: 2008Q2

REPORT INFORMATION
  Report Type: 
  Country: None (occurrence: None)
  Receive Date: 20080605
  Receipt Date: 20080409
  Transmission Date: 20081010
  Serious: No
  Sender: FDA-Public Use
  Company Number: A0719322A

PATIENT

DRUGS (2)
  1. ALLI [Suspect]
  2. PAIN MEDICATION [Suspect]

REACTIONS (5)
  - BINGE EATING [None]
  - NAUSEA [None]
  - NERVE INJURY [None]
  - WEIGHT FLUCTUATION [None]
  - WEIGHT INCREASED [None]
